FAERS Safety Report 9115714 (Version 1)
Quarter: 2013Q1

REPORT INFORMATION
  Report Type: Spontaneous
  Country: NZ (occurrence: NZ)
  Receive Date: 20130225
  Receipt Date: 20130225
  Transmission Date: 20140127
  Serious: Yes (Other)
  Sender: FDA-Public Use
  Company Number: NZ-BAXTER-2013BAX006281

PATIENT
  Age: 75 Year
  Sex: Male

DRUGS (1)
  1. EXTRANEAL [Suspect]
     Indication: PERITONEAL DIALYSIS
     Route: 033
     Dates: start: 20130121, end: 20130131

REACTIONS (2)
  - Urticaria [Recovered/Resolved]
  - Rash [Recovered/Resolved]
